FAERS Safety Report 7669038-5 (Version None)
Quarter: 2011Q3

REPORT INFORMATION
  Report Type: 
  Country: None (occurrence: None)
  Receive Date: 20110808
  Receipt Date: 20110728
  Transmission Date: 20111222
  Serious: No
  Sender: FDA-Public Use
  Company Number: US-ROXANE LABORATORIES, INC.-2011-RO-00800RO

PATIENT
  Sex: Female
  Weight: 52 kg

DRUGS (3)
  1. XANAX [Concomitant]
     Indication: ANXIETY
     Route: 048
  2. PROTRIPTYLINE HCL [Suspect]
     Indication: DEPRESSION
     Dosage: 20 MG
     Route: 048
     Dates: start: 20110101
  3. XANAX [Concomitant]
     Indication: PANIC ATTACK

REACTIONS (3)
  - FEELING HOT [None]
  - FLUSHING [None]
  - AGITATION [None]
